FAERS Safety Report 18952864 (Version 2)
Quarter: 2021Q1

REPORT INFORMATION
  Report Type: Report from Study
  Country: US (occurrence: US)
  Receive Date: 20210301
  Receipt Date: 20210303
  Transmission Date: 20210420
  Serious: No
  Sender: FDA-Public Use
  Company Number: NVSC2021US043071

PATIENT
  Age: 38 Year
  Sex: Female

DRUGS (1)
  1. COSENTYX [Suspect]
     Active Substance: SECUKINUMAB
     Indication: PSORIASIS
     Dosage: UNK, BENEATH THE SKIN, USUALLY VIA INJECTION
     Route: 058

REACTIONS (3)
  - Upper-airway cough syndrome [Unknown]
  - Allergic cough [Unknown]
  - Sinus disorder [Unknown]
